FAERS Safety Report 9846731 (Version 1)
Quarter: 2014Q1

REPORT INFORMATION
  Report Type: Spontaneous
  Country: US (occurrence: US)
  Receive Date: 20140127
  Receipt Date: 20140127
  Transmission Date: 20141002
  Serious: No
  Sender: FDA-Public Use
  Company Number: US-GILEAD-2011-0048358

PATIENT
  Sex: Male

DRUGS (3)
  1. COMPLERA [Suspect]
     Indication: HIV INFECTION
  2. TRUVADA [Concomitant]
     Indication: HIV INFECTION
  3. VIRACEPT [Concomitant]
     Indication: HIV INFECTION

REACTIONS (3)
  - Constipation [Unknown]
  - Insomnia [Unknown]
  - Headache [Unknown]
